FAERS Safety Report 5237278-0 (Version None)
Quarter: 2007Q1

REPORT INFORMATION
  Report Type: 
  Country: None (occurrence: None)
  Receive Date: 20070213
  Receipt Date: 20070202
  Transmission Date: 20070707
  Serious: Yes (Other)
  Sender: FDA-Public Use
  Company Number: US-AMGEN-US208616

PATIENT
  Sex: Male
  Weight: 95.6 kg

DRUGS (25)
  1. ARANESP [Suspect]
     Indication: ANAEMIA OF MALIGNANT DISEASE
     Route: 058
     Dates: start: 20061205, end: 20070125
  2. ACYCLOVIR [Concomitant]
     Route: 048
  3. ATENOLOL [Concomitant]
     Route: 048
  4. FINASTERIDE [Concomitant]
     Route: 048
  5. GLYBURIDE [Concomitant]
     Route: 048
  6. HYDROCHLOROTHIAZIDE [Concomitant]
  7. NEULASTA [Concomitant]
  8. PROCHLORPERAZINE [Concomitant]
     Route: 048
  9. SIMVASTATIN [Concomitant]
     Route: 048
  10. PSEUDOEPHEDRINE W/TRIPROLIDINE [Concomitant]
     Route: 048
  11. SULFAMETHOXAZOLE W/TRIMETHOPRIM [Concomitant]
     Route: 048
  12. TERAZOSIN HYDROCHLORIDE [Concomitant]
     Route: 048
  13. FLOMAX [Concomitant]
     Route: 048
  14. TAMSULOSIN HCL [Concomitant]
     Route: 048
  15. ASPIRIN [Concomitant]
  16. ASCORBIC ACID [Concomitant]
  17. METFORMIN HCL [Concomitant]
  18. DEXAMETHASONE [Concomitant]
  19. RANITIDINE [Concomitant]
     Dates: start: 20050729
  20. ARTIFICIAL TEARS [Concomitant]
     Route: 047
  21. RITUXIMAB [Concomitant]
     Route: 042
     Dates: start: 20061127
  22. PENTOSTATIN [Concomitant]
     Route: 042
     Dates: start: 20070103
  23. FLUDARABINE [Concomitant]
     Dates: start: 20061127
  24. CYCLOPHOSPHAMIDE [Concomitant]
     Route: 042
     Dates: start: 20070103
  25. VITAMIN B-12 [Concomitant]
     Dates: start: 20060601

REACTIONS (2)
  - ANAEMIA [None]
  - APLASIA PURE RED CELL [None]
